FAERS Safety Report 16079987 (Version 3)
Quarter: 2020Q3

REPORT INFORMATION
  Report Type: Report from Study
  Country: CA (occurrence: CA)
  Receive Date: 20190315
  Receipt Date: 20190604
  Transmission Date: 20201105
  Serious: Yes (Other)
  Sender: FDA-Public Use
  Company Number: CA-PFIZER INC-2017382269

PATIENT
  Age: 61 Year
  Sex: Female
  Weight: 61.1 kg

DRUGS (8)
  1. FERROUS SULFATE. [Concomitant]
     Active Substance: FERROUS SULFATE
     Indication: IRON DEFICIENCY
     Dosage: 300 MG, 2X/DAY
     Route: 048
     Dates: start: 20170404
  2. LACTULOSE. [Concomitant]
     Active Substance: LACTULOSE
     Indication: CONSTIPATION PROPHYLAXIS
     Dosage: 30 ML, DAILY
     Route: 048
     Dates: start: 20170404
  3. INNOHEP [Concomitant]
     Active Substance: TINZAPARIN SODIUM
     Indication: PULMONARY EMBOLISM
     Dosage: 16000 IU, DAILY
     Route: 058
     Dates: start: 2015
  4. LAX?A?DAY [Concomitant]
     Indication: PROPHYLAXIS
     Dosage: 17 G, DAILY
     Route: 048
     Dates: start: 20170404
  5. TALAZOPARIB. [Suspect]
     Active Substance: TALAZOPARIB
     Indication: SALIVARY GLAND CANCER
     Dosage: 0.75 MG, DAILY
     Route: 048
     Dates: start: 20170504, end: 20170823
  6. SANDOZ AMLODIPINE /00972402/ [Concomitant]
     Active Substance: AMLODIPINE BESYLATE
     Indication: HYPERTENSION
     Dosage: 2.5 MG, DAILY
     Route: 048
     Dates: start: 2000, end: 20170419
  7. TYLENOL [Concomitant]
     Active Substance: ACETAMINOPHEN
     Indication: PAIN
     Dosage: 1000 MG, AS NEEDED
     Route: 048
     Dates: start: 2012
  8. VENTOLIN [Concomitant]
     Active Substance: ALBUTEROL SULFATE
     Indication: DYSPNOEA
     Dosage: 2?4 PUFFS, AS NEEDED
     Route: 055
     Dates: start: 20170419

REACTIONS (2)
  - Second primary malignancy [Not Recovered/Not Resolved]
  - Leukaemia [Not Recovered/Not Resolved]

NARRATIVE: CASE EVENT DATE: 20170824
